FAERS Safety Report 6394040-3 (Version None)
Quarter: 2009Q4

REPORT INFORMATION
  Report Type: 
  Country: None (occurrence: None)
  Receive Date: 20091008
  Receipt Date: 20090930
  Transmission Date: 20100525
  Serious: Yes (Hospitalization)
  Sender: FDA-Public Use
  Company Number: US-ABBOTT-09P-163-0600518-00

PATIENT
  Sex: Male
  Weight: 60.382 kg

DRUGS (4)
  1. DEPAKOTE ER [Suspect]
     Indication: SCHIZOAFFECTIVE DISORDER
     Dates: start: 19990101
  2. DEPAKOTE ER [Suspect]
     Route: 048
     Dates: start: 20090917, end: 20090921
  3. DEPAKOTE ER [Suspect]
     Route: 048
     Dates: start: 20090922, end: 20090924
  4. DEPAKOTE ER [Suspect]
     Route: 048
     Dates: start: 20090925

REACTIONS (2)
  - DIZZINESS [None]
  - SCHIZOAFFECTIVE DISORDER [None]
